FAERS Safety Report 8031846-9 (Version None)
Quarter: 2012Q1

REPORT INFORMATION
  Report Type: 
  Country: None (occurrence: None)
  Receive Date: 20120109
  Receipt Date: 20120103
  Transmission Date: 20120608
  Serious: Yes (Other)
  Sender: FDA-Public Use
  Company Number: US-ASTRAZENECA-2012SE00406

PATIENT
  Age: 55 Year
  Sex: Female
  Weight: 86.2 kg

DRUGS (1)
  1. SEROQUEL [Suspect]
     Indication: BIPOLAR DISORDER
     Route: 048

REACTIONS (5)
  - DRUG DOSE OMISSION [None]
  - SUICIDAL IDEATION [None]
  - DEPRESSION [None]
  - WEIGHT INCREASED [None]
  - CRYING [None]
